FAERS Safety Report 25929171 (Version 1)
Quarter: 2025Q4

REPORT INFORMATION
  Report Type: Spontaneous
  Country: US (occurrence: US)
  Receive Date: 20251016
  Receipt Date: 20251016
  Transmission Date: 20260118
  Serious: Yes (Hospitalization, Other)
  Sender: SANOFI AVENTIS
  Company Number: US-SA-2025SA307336

PATIENT
  Age: 63 Year
  Sex: Male

DRUGS (5)
  1. DUPIXENT [Suspect]
     Active Substance: DUPILUMAB
     Indication: Dermatitis atopic
     Dosage: 300 MG, QOW
     Route: 058
     Dates: start: 202308
  2. HYDROCORTISONE [Concomitant]
     Active Substance: HYDROCORTISONE
  3. FISH OIL [Concomitant]
     Active Substance: FISH OIL
  4. VIGAMOX [Concomitant]
     Active Substance: MOXIFLOXACIN HYDROCHLORIDE
  5. PREDNISONE [Concomitant]
     Active Substance: PREDNISONE

REACTIONS (5)
  - Dermatitis exfoliative generalised [Unknown]
  - Nephrectomy [Unknown]
  - Lichenification [Unknown]
  - Rash erythematous [Unknown]
  - Eczema [Unknown]

NARRATIVE: CASE EVENT DATE: 20250801
